FAERS Safety Report 23735656 (Version 1)
Quarter: 2024Q2

REPORT INFORMATION
  Report Type: Spontaneous
  Country: US (occurrence: US)
  Receive Date: 20240412
  Receipt Date: 20240412
  Transmission Date: 20240716
  Serious: Yes (Other)
  Sender: FDA-Public Use
  Company Number: US-PFIZER INC-PV202400044673

PATIENT
  Age: 31 Year
  Sex: Female

DRUGS (2)
  1. DEMEROL [Suspect]
     Active Substance: MEPERIDINE HYDROCHLORIDE
     Indication: Local anaesthesia
     Dosage: 50 MG
     Route: 013
  2. PHENERGAN [Suspect]
     Active Substance: PROMETHAZINE HYDROCHLORIDE
     Indication: Local anaesthesia
     Dosage: 20 MG

REACTIONS (2)
  - Incorrect route of product administration [Recovered/Resolved]
  - Arteritis [Recovered/Resolved]
